FAERS Safety Report 16928793 (Version 1)
Quarter: 2019Q4

REPORT INFORMATION
  Report Type: Spontaneous
  Country: US (occurrence: US)
  Receive Date: 20190824
  Receipt Date: 20190824
  Transmission Date: 20200122
  Serious: Yes (Hospitalization)
  Sender: FDA-Public Use
  Company Number: None

PATIENT
  Age: 4 Year
  Sex: Male
  Weight: 19.3 kg

DRUGS (2)
  1. THIOTEPA. [Suspect]
     Active Substance: THIOTEPA
     Dates: end: 20190719
  2. CYCLOPHOSPHAMIDE. [Suspect]
     Active Substance: CYCLOPHOSPHAMIDE
     Dates: end: 20190722

REACTIONS (5)
  - Platelet transfusion [None]
  - Venoocclusive liver disease [None]
  - Thrombocytopenia [None]
  - Venoocclusive disease [None]
  - Hepatotoxicity [None]

NARRATIVE: CASE EVENT DATE: 20190810
